FAERS Safety Report 14214310 (Version 1)
Quarter: 2017Q4

REPORT INFORMATION
  Report Type: Spontaneous
  Country: JP (occurrence: JP)
  Receive Date: 20171122
  Receipt Date: 20171122
  Transmission Date: 20180321
  Serious: Yes (Hospitalization, Other)
  Sender: FDA-Public Use
  Company Number: JP-SA-2017SA228662

PATIENT
  Age: 81 Year
  Sex: Female

DRUGS (2)
  1. ASPIRIN. [Suspect]
     Active Substance: ASPIRIN
     Indication: PROPHYLAXIS
     Route: 048
  2. CLOPIDOGREL BISULFATE. [Suspect]
     Active Substance: CLOPIDOGREL BISULFATE
     Indication: PROPHYLAXIS
     Route: 048

REACTIONS (6)
  - Gallbladder cancer [Recovered/Resolved]
  - Abdominal tenderness [Recovering/Resolving]
  - Vomiting [Recovering/Resolving]
  - Haemobilia [Recovering/Resolving]
  - Haematoma [Recovering/Resolving]
  - Abdominal pain upper [Recovering/Resolving]
